FAERS Safety Report 23661601 (Version 1)
Quarter: 2024Q1

REPORT INFORMATION
  Report Type: Spontaneous
  Country: US (occurrence: US)
  Receive Date: 20240322
  Receipt Date: 20240322
  Transmission Date: 20240409
  Serious: Yes (Other)
  Sender: FDA-Public Use
  Company Number: US-ABBVIE-5685901

PATIENT
  Sex: Female

DRUGS (1)
  1. REFRESH P.M. [Suspect]
     Active Substance: MINERAL OIL\PETROLATUM
     Indication: Product used for unknown indication
     Dosage: STRENGTH: MINERAL OIL 425MG/ML, WHITE PETROLATUM 573MG/ML
     Route: 047

REACTIONS (2)
  - Surgery [Unknown]
  - Eye disorder [Unknown]
